FAERS Safety Report 5074039-X (Version None)
Quarter: 2006Q3

REPORT INFORMATION
  Report Type: 
  Country: None (occurrence: None)
  Receive Date: 20060808
  Receipt Date: 20050615
  Transmission Date: 20061208
  Serious: No
  Sender: FDA-Public Use
  Company Number: US-AMGEN-KDL139280

PATIENT
  Sex: Male

DRUGS (12)
  1. PROCRIT [Suspect]
     Indication: RENAL FAILURE CHRONIC
     Dates: start: 20050401
  2. COUMADIN [Concomitant]
     Dates: end: 20050526
  3. MEMANTINE HCL [Concomitant]
  4. LOTREL [Concomitant]
  5. FLOMAX [Concomitant]
  6. CELEBREX [Concomitant]
  7. PROSCAR [Concomitant]
  8. NPH INSULIN [Concomitant]
  9. HUMALOG [Concomitant]
  10. GLUCOSAMINE [Concomitant]
  11. HCT [Concomitant]
  12. ARICEPT [Concomitant]

REACTIONS (1)
  - PROTHROMBIN TIME PROLONGED [None]
